FAERS Safety Report 9008265 (Version 2)
Quarter: 2013Q1

REPORT INFORMATION
  Report Type: Spontaneous
  Country: BR (occurrence: BR)
  Receive Date: 20130111
  Receipt Date: 20130325
  Transmission Date: 20140127
  Serious: Yes (Hospitalization)
  Sender: FDA-Public Use
  Company Number: BR-AMGEN-BRASP2013001946

PATIENT
  Age: 78 Year
  Sex: Female
  Weight: 49 kg

DRUGS (6)
  1. ENBREL [Suspect]
     Indication: RHEUMATOID ARTHRITIS
     Dosage: 50 MG, ONCE WEEKLY
     Route: 058
     Dates: start: 201009, end: 201212
  2. ROSUVASTATIN [Concomitant]
     Dosage: 1 TABLET (40 MG), 1X/DAY
     Route: 048
  3. SUSTRATE [Concomitant]
     Dosage: UNK UNK, UNK
  4. DEPAKOTE [Concomitant]
     Dosage: 1 TABLET (500 MG), 1X/DAY
     Route: 048
  5. SERTRALINE [Concomitant]
     Dosage: 1 TABLET (75 MG), 1X/DAY (AT NIGHT)
     Route: 048
  6. CONCOR [Concomitant]
     Dosage: 1 TABLET (10 MG), 1X/DAY
     Route: 048

REACTIONS (1)
  - Syncope [Unknown]
